FAERS Safety Report 9879541 (Version 2)
Quarter: 2014Q1

REPORT INFORMATION
  Report Type: Report from Study
  Country: JP (occurrence: JP)
  Receive Date: 20140206
  Receipt Date: 20140220
  Transmission Date: 20141002
  Serious: Yes (Death)
  Sender: FDA-Public Use
  Company Number: JP-009507513-1402JPN000401

PATIENT
  Sex: Male
  Weight: 54 kg

DRUGS (2)
  1. CANCIDAS FOR INTRAVENOUS DRIP INFUSION 70MG [Suspect]
     Indication: PNEUMONIA
     Dosage: 70 MG, ONCE
     Route: 041
     Dates: start: 20131212, end: 20131212
  2. CANCIDAS FOR INTRAVENOUS DRIP INFUSION 70MG [Suspect]
     Indication: PNEUMONIA
     Dosage: 50 MG, ONCE
     Route: 041
     Dates: start: 20131213, end: 20131225

REACTIONS (3)
  - Renal failure chronic [Fatal]
  - Pneumonia [Fatal]
  - Drug ineffective [Unknown]
